FAERS Safety Report 11192332 (Version 1)
Quarter: 2015Q2

REPORT INFORMATION
  Report Type: Spontaneous
  Country: DE (occurrence: DE)
  Receive Date: 20150616
  Receipt Date: 20150616
  Transmission Date: 20150821
  Serious: Yes (Hospitalization)
  Sender: FDA-Public Use
  Company Number: DE-SA-2015SA081400

PATIENT
  Age: 80 Year
  Sex: Male

DRUGS (12)
  1. JANUVIA [Suspect]
     Active Substance: SITAGLIPTIN PHOSPHATE
     Route: 065
  2. OXYCODONE [Suspect]
     Active Substance: OXYCODONE
     Route: 065
  3. TAMSULOSIN [Suspect]
     Active Substance: TAMSULOSIN
     Route: 065
  4. FOLSAN [Suspect]
     Active Substance: FOLIC ACID
     Route: 065
  5. TOREM [Suspect]
     Active Substance: TORSEMIDE
     Route: 065
  6. LANTUS [Suspect]
     Active Substance: INSULIN GLARGINE
     Dosage: DROPS
     Route: 065
  7. LYRICA [Suspect]
     Active Substance: PREGABALIN
     Route: 065
  8. VIGANTOLETTEN [Suspect]
     Active Substance: CHOLECALCIFEROL
     Route: 065
  9. METAMIZOLE SODIUM [Suspect]
     Active Substance: METAMIZOLE SODIUM
     Dosage: DROPS
     Route: 065
  10. TILIDINE [Suspect]
     Active Substance: TILIDINE
     Route: 065
  11. OPIPRAMOL [Suspect]
     Active Substance: OPIPRAMOL
     Route: 065
  12. ARCOXIA [Suspect]
     Active Substance: ETORICOXIB
     Route: 065

REACTIONS (5)
  - Fatigue [Unknown]
  - Fall [Unknown]
  - Dizziness [Unknown]
  - Laceration [Unknown]
  - Upper limb fracture [Unknown]
